FAERS Safety Report 15149619 (Version 1)
Quarter: 2018Q3

REPORT INFORMATION
  Report Type: Report from Study
  Country: ZA (occurrence: ZA)
  Receive Date: 20180716
  Receipt Date: 20180716
  Transmission Date: 20181010
  Serious: Yes (Hospitalization)
  Sender: FDA-Public Use
  Company Number: PHHO2011ZA02738

PATIENT
  Age: 31 Year
  Sex: Female
  Weight: 45.3 kg

DRUGS (9)
  1. COMPARATOR TRASTUZUMAB [Suspect]
     Active Substance: TRASTUZUMAB
     Indication: BREAST CANCER METASTATIC
     Dosage: 192 MG, WEEKLY
     Route: 041
     Dates: start: 20110201
  2. ACYCLOVIR. [Concomitant]
     Active Substance: ACYCLOVIR
     Indication: HERPES SIMPLEX
  3. AFINITOR [Suspect]
     Active Substance: EVEROLIMUS
     Indication: BREAST CANCER METASTATIC
     Dosage: UNK
     Route: 048
     Dates: start: 20110201, end: 20110207
  4. COMPARATOR PACLITAXEL [Suspect]
     Active Substance: PACLITAXEL
     Indication: BREAST CANCER METASTATIC
     Dosage: 112 MG/M2, WEEKLY
     Route: 041
     Dates: start: 20110201
  5. PANADOL CODEINE [Concomitant]
     Indication: PAIN
  6. AFINITOR [Suspect]
     Active Substance: EVEROLIMUS
     Dosage: UNK
     Route: 048
     Dates: start: 20110301
  7. GLYCOTHYMOLIN [Concomitant]
  8. COMPARATOR PACLITAXEL [Suspect]
     Active Substance: PACLITAXEL
     Dosage: 60 MG/M2, UNK
     Route: 041
     Dates: start: 20110301
  9. ANTIEMETICS [Concomitant]
     Active Substance: UNSPECIFIED INGREDIENT
     Indication: NAUSEA

REACTIONS (6)
  - Febrile neutropenia [Recovered/Resolved]
  - Tachycardia [Unknown]
  - Nausea [Recovered/Resolved]
  - Asthenia [Recovered/Resolved]
  - Vomiting [Recovered/Resolved]
  - Pyrexia [Recovered/Resolved]

NARRATIVE: CASE EVENT DATE: 20110204
